FAERS Safety Report 9280571 (Version 3)
Quarter: 2013Q2

REPORT INFORMATION
  Report Type: Report from Study
  Country: CA (occurrence: CA)
  Receive Date: 20130509
  Receipt Date: 20130522
  Transmission Date: 20140414
  Serious: Yes (Hospitalization, Other)
  Sender: FDA-Public Use
  Company Number: CA-ROCHE-1162265

PATIENT
  Age: 45 Year
  Sex: Male
  Weight: 91 kg

DRUGS (2)
  1. AVASTIN [Suspect]
     Indication: GLIOBLASTOMA
     Route: 042
     Dates: start: 20121126
  2. CARBAMAZEPINE [Concomitant]

REACTIONS (17)
  - Convulsion [Unknown]
  - Blood phosphorus decreased [Unknown]
  - Neoplasm [Unknown]
  - Disease progression [Unknown]
  - Cough [Not Recovered/Not Resolved]
  - Tooth abscess [Not Recovered/Not Resolved]
  - Nasopharyngitis [Not Recovered/Not Resolved]
  - Toothache [Not Recovered/Not Resolved]
  - Gingival inflammation [Not Recovered/Not Resolved]
  - Gingival erythema [Not Recovered/Not Resolved]
  - Face oedema [Unknown]
  - Weight increased [Unknown]
  - Confusional state [Unknown]
  - Aphasia [Unknown]
  - Amnesia [Unknown]
  - Dyspnoea exertional [Not Recovered/Not Resolved]
  - Cough [Not Recovered/Not Resolved]
